FAERS Safety Report 10247496 (Version 1)
Quarter: 2014Q2

REPORT INFORMATION
  Report Type: Spontaneous
  Country: IT (occurrence: None)
  Receive Date: 20140617
  Receipt Date: 20140617
  Transmission Date: 20141212
  Serious: Yes (Other)
  Sender: FDA-Public Use
  Company Number: DEP_02146_2014

PATIENT
  Sex: Female

DRUGS (1)
  1. PECFENT (PECFENT (FENTANYL)) (NOT SPECIFIED) [Suspect]
     Indication: PRODUCT USED FOR UNKNOWN INDICATION
     Dosage: 1 BOTTLE

REACTIONS (2)
  - Confusional state [None]
  - Sopor [None]
